FAERS Safety Report 7068607-3 (Version None)
Quarter: 2010Q4

REPORT INFORMATION
  Report Type: 
  Country: None (occurrence: None)
  Receive Date: 20101028
  Receipt Date: 20101022
  Transmission Date: 20110411
  Serious: Yes (Death)
  Sender: FDA-Public Use
  Company Number: JP-ROCHE-736417

PATIENT
  Sex: Female
  Weight: 50 kg

DRUGS (13)
  1. TOCILIZUMAB [Suspect]
     Indication: RHEUMATOID ARTHRITIS
     Route: 041
     Dates: start: 20090728, end: 20090728
  2. TOCILIZUMAB [Suspect]
     Route: 041
     Dates: start: 20090825, end: 20090825
  3. TOCILIZUMAB [Suspect]
     Route: 041
     Dates: start: 20090917, end: 20090917
  4. TOCILIZUMAB [Suspect]
     Route: 041
     Dates: start: 20091016, end: 20091016
  5. TOCILIZUMAB [Suspect]
     Route: 041
     Dates: start: 20091112, end: 20091112
  6. TOCILIZUMAB [Suspect]
     Route: 041
     Dates: start: 20091211, end: 20091211
  7. TOCILIZUMAB [Suspect]
     Route: 041
     Dates: start: 20100219
  8. PREDNISOLONE [Concomitant]
     Dosage: DOSE FORM: PERORAL AGENT
     Route: 048
     Dates: end: 20090916
  9. PREDNISOLONE [Concomitant]
     Route: 048
     Dates: start: 20090917, end: 20091015
  10. PREDNISOLONE [Concomitant]
     Route: 048
     Dates: start: 20091016, end: 20100415
  11. PREDNISOLONE [Concomitant]
     Route: 048
     Dates: start: 20100416
  12. NORVASC [Concomitant]
     Dosage: DOSE FORM: PERORAL AGENT, DRUG NAME: NORVASC OD(AMLODIPINE BESILATE)
     Route: 048
  13. BASEN [Concomitant]
     Dosage: DOSE FORM: PERORAL AGENT, DRUG NAME:BASEN OD(VOGLIBOSE)
     Route: 048

REACTIONS (1)
  - GASTRIC CANCER [None]
